FAERS Safety Report 9167976 (Version 2)
Quarter: 2013Q2

REPORT INFORMATION
  Report Type: Spontaneous
  Country: US (occurrence: US)
  Receive Date: 20130318
  Receipt Date: 20130611
  Transmission Date: 20140414
  Serious: Yes (Other)
  Sender: FDA-Public Use
  Company Number: US-JNJFOC-20130309010

PATIENT
  Age: 76 Year
  Sex: Female

DRUGS (1)
  1. IBUPROFEN [Suspect]
     Indication: PRODUCT USED FOR UNKNOWN INDICATION
     Route: 048

REACTIONS (6)
  - Haemorrhage [Unknown]
  - Drug hypersensitivity [Unknown]
  - Epistaxis [Unknown]
  - Gingival bleeding [Unknown]
  - Haemoptysis [Unknown]
  - Tooth abscess [Unknown]
